FAERS Safety Report 24836558 (Version 3)
Quarter: 2025Q1

REPORT INFORMATION
  Report Type: Report from Study
  Country: IL (occurrence: IL)
  Receive Date: 20250113
  Receipt Date: 20250225
  Transmission Date: 20250408
  Serious: Yes (Hospitalization, Other)
  Sender: TAKEDA
  Company Number: IL-TAKEDA-2025TUS002599

PATIENT
  Age: 90 Year
  Sex: Male

DRUGS (7)
  1. VELAGLUCERASE ALFA [Suspect]
     Active Substance: VELAGLUCERASE ALFA
     Indication: Gaucher^s disease
     Dosage: 60 INTERNATIONAL UNIT/KILOGRAM, Q2WEEKS
     Dates: start: 20040626, end: 20050503
  2. VELAGLUCERASE ALFA [Suspect]
     Active Substance: VELAGLUCERASE ALFA
     Dosage: 15 INTERNATIONAL UNIT/KILOGRAM, Q2WEEKS
     Dates: start: 20100414, end: 202104
  3. VELAGLUCERASE ALFA [Suspect]
     Active Substance: VELAGLUCERASE ALFA
     Dosage: 30 INTERNATIONAL UNIT/KILOGRAM, Q2WEEKS
     Dates: start: 202105
  4. BISOPROLOL FUMARATE [Concomitant]
     Active Substance: BISOPROLOL FUMARATE
     Indication: Hypertension
     Dosage: 2.5 MILLIGRAM, QD
  5. RAMIPRIL [Concomitant]
     Active Substance: RAMIPRIL
     Indication: Hypertension
     Dosage: UNK UNK, QD
     Dates: start: 2008
  6. WARFARIN SODIUM [Concomitant]
     Active Substance: WARFARIN SODIUM
     Indication: Atrial fibrillation
     Dosage: UNK UNK, QD
     Dates: start: 2010
  7. AMLODIPINE [Concomitant]
     Active Substance: AMLODIPINE BESYLATE
     Indication: Hypertension
     Dosage: UNK UNK, QD
     Dates: start: 2016

REACTIONS (1)
  - Myocardial ischaemia [Recovered/Resolved]

NARRATIVE: CASE EVENT DATE: 20241222
